FAERS Safety Report 7805395-4 (Version None)
Quarter: 2011Q4

REPORT INFORMATION
  Report Type: 
  Country: None (occurrence: None)
  Receive Date: 20111010
  Receipt Date: 20111003
  Transmission Date: 20120403
  Serious: Yes (Death, Hospitalization, Other)
  Sender: FDA-Public Use
  Company Number: US-PFIZER INC-2009218992

PATIENT
  Sex: Male
  Weight: 76.203 kg

DRUGS (9)
  1. SIMVASTATIN [Concomitant]
     Dosage: UNK
  2. ASPIRIN [Concomitant]
     Dosage: UNK
  3. OMEPRAZOLE [Concomitant]
     Dosage: UNK
  4. FINASTERIDE [Concomitant]
     Dosage: UNK
  5. SYNTHROID [Concomitant]
     Dosage: UNK
  6. ATENOLOL [Concomitant]
     Dosage: UNK
  7. HYDROCODONE BITARTRATE [Concomitant]
     Dosage: UNK
  8. XALATAN [Suspect]
     Indication: GLAUCOMA
     Dosage: UNK
     Dates: start: 19990101
  9. TEMAZEPAM [Concomitant]
     Dosage: UNK

REACTIONS (4)
  - DEATH [None]
  - THYROID CANCER [None]
  - SKIN CANCER [None]
  - BLADDER CANCER [None]
